FAERS Safety Report 24610465 (Version 2)
Quarter: 2025Q1

REPORT INFORMATION
  Report Type: Report from Study
  Country: US (occurrence: US)
  Receive Date: 20241112
  Receipt Date: 20250107
  Transmission Date: 20250409
  Serious: No
  Sender: SUNOVION
  Company Number: US-SUMITOMO PHARMA SWITZERLAND GMBH-2024SPA004731

PATIENT

DRUGS (4)
  1. ORGOVYX [Suspect]
     Active Substance: RELUGOLIX
     Indication: Prostate cancer
     Dosage: 360 MG, SINGLE
     Route: 048
     Dates: start: 20241020, end: 20241020
  2. ORGOVYX [Suspect]
     Active Substance: RELUGOLIX
     Dosage: 120 MG, QD
     Route: 048
     Dates: start: 20241021
  3. MORPHINE [Suspect]
     Active Substance: MORPHINE
     Route: 065
  4. NUBEQA [Concomitant]
     Active Substance: DAROLUTAMIDE
     Indication: Prostate cancer
     Dosage: 600 MG, BID
     Route: 065
     Dates: start: 20241020

REACTIONS (9)
  - Chills [Unknown]
  - Metabolic disorder [Unknown]
  - Illness [Unknown]
  - Laboratory test abnormal [Unknown]
  - Pain [Recovering/Resolving]
  - Blood calcium decreased [Unknown]
  - Feeling hot [Unknown]
  - Blood glucose increased [Unknown]
  - Therapy interrupted [Recovered/Resolved]
